FAERS Safety Report 9071182 (Version 1)
Quarter: 2013Q1

REPORT INFORMATION
  Report Type: Spontaneous
  Country: US (occurrence: US)
  Receive Date: 20130129
  Receipt Date: 20130129
  Transmission Date: 20140127
  Serious: Yes (Other)
  Sender: FDA-Public Use
  Company Number: US-AMGEN-USASP2013004751

PATIENT
  Age: 55 Year
  Sex: Female

DRUGS (1)
  1. ENBREL [Suspect]
     Indication: RHEUMATOID ARTHRITIS
     Dosage: 50 MG, QWK
     Dates: start: 20080730, end: 20120823

REACTIONS (15)
  - Cystitis interstitial [Not Recovered/Not Resolved]
  - Arthritis [Recovered/Resolved]
  - Inflammation [Recovered/Resolved]
  - Constipation [Recovered/Resolved]
  - Local swelling [Recovered/Resolved]
  - Electrolyte imbalance [Recovered/Resolved]
  - Hypersensitivity [Not Recovered/Not Resolved]
  - Pruritus [Not Recovered/Not Resolved]
  - Cough [Not Recovered/Not Resolved]
  - Upper-airway cough syndrome [Not Recovered/Not Resolved]
  - Nasal congestion [Not Recovered/Not Resolved]
  - Rhinorrhoea [Not Recovered/Not Resolved]
  - Vomiting [Recovered/Resolved]
  - Atypical pneumonia [Recovered/Resolved]
  - Sinusitis [Recovered/Resolved]
